FAERS Safety Report 21082371 (Version 3)
Quarter: 2024Q2

REPORT INFORMATION
  Report Type: Spontaneous
  Country: US (occurrence: US)
  Receive Date: 20220714
  Receipt Date: 20240612
  Transmission Date: 20240716
  Serious: Yes (Other)
  Sender: FDA-Public Use
  Company Number: US-SA-SAC00000000074200

PATIENT
  Age: 13 Year
  Sex: Male

DRUGS (2)
  1. ELOCTATE [Suspect]
     Active Substance: EFMOROCTOCOG ALFA
     Dosage: 2000 UNITS Q 24 H PRN
     Route: 042
  2. ELOCTATE [Suspect]
     Active Substance: EFMOROCTOCOG ALFA
     Dosage: 2000 UNITS Q 24 H PRN
     Route: 042

REACTIONS (9)
  - Haemorrhage [Not Recovered/Not Resolved]
  - Limb injury [Unknown]
  - Contusion [Unknown]
  - Joint injury [Unknown]
  - Fall [Unknown]
  - Injury [Unknown]
  - Sports injury [Unknown]
  - Limb injury [Unknown]
  - Peripheral swelling [Unknown]

NARRATIVE: CASE EVENT DATE: 20220601
